FAERS Safety Report 4452358-5 (Version None)
Quarter: 2004Q3

REPORT INFORMATION
  Report Type: 
  Country: None (occurrence: None)
  Receive Date: 20040915
  Receipt Date: 20040903
  Transmission Date: 20050211
  Serious: Yes (Hospitalization)
  Sender: FDA-Public Use
  Company Number: US013651

PATIENT
  Age: 35 Year
  Sex: Female
  Weight: 85 kg

DRUGS (10)
  1. MODAFINIL [Suspect]
     Indication: FATIGUE
     Dosage: 400 MG QD ORAL
     Route: 048
     Dates: start: 20031119
  2. MODAFINIL [Suspect]
     Indication: MULTIPLE SCLEROSIS
     Dosage: 400 MG QD ORAL
     Route: 048
     Dates: start: 20031119
  3. MODAFINIL [Suspect]
     Indication: FATIGUE
     Dosage: 200 MG QD ORAL
     Route: 048
     Dates: start: 20040801
  4. MODAFINIL [Suspect]
     Indication: MULTIPLE SCLEROSIS
     Dosage: 200 MG QD ORAL
     Route: 048
     Dates: start: 20040801
  5. SOBRIL [Concomitant]
  6. CIPRALEX [Concomitant]
  7. NOZINAN [Concomitant]
  8. FLUNIPAM [Concomitant]
  9. REBIF [Concomitant]
  10. FOLIC ACID [Concomitant]

REACTIONS (1)
  - CHOLELITHIASIS [None]
